FAERS Safety Report 7688434-3 (Version None)
Quarter: 2011Q3

REPORT INFORMATION
  Report Type: 
  Country: None (occurrence: None)
  Receive Date: 20110817
  Receipt Date: 20110816
  Transmission Date: 20111222
  Serious: Yes (Other)
  Sender: FDA-Public Use
  Company Number: FR-ROCHE-795296

PATIENT
  Sex: Male
  Weight: 24 kg

DRUGS (1)
  1. ROCEPHIN [Suspect]
     Dosage: FREQUENCY: DAILY
     Route: 042
     Dates: start: 20110802, end: 20110804

REACTIONS (2)
  - CHOLELITHIASIS [None]
  - NEPHROLITHIASIS [None]
